FAERS Safety Report 8110919-6 (Version None)
Quarter: 2012Q1

REPORT INFORMATION
  Report Type: 
  Country: None (occurrence: None)
  Receive Date: 20120203
  Receipt Date: 20120125
  Transmission Date: 20120608
  Serious: Yes (Other)
  Sender: FDA-Public Use
  Company Number: US-AMGEN-USASP2012005685

PATIENT
  Age: 59 Year
  Sex: Female

DRUGS (3)
  1. PROCRIT [Suspect]
     Dosage: 40000 IU, QWK
     Dates: start: 20110927, end: 20111228
  2. RIBAVIRIN [Concomitant]
     Indication: HEPATITIS C
  3. PROCRIT [Suspect]
     Indication: HAEMOLYTIC ANAEMIA
     Dosage: UNK
     Dates: start: 20060101

REACTIONS (2)
  - HAEMOGLOBIN DECREASED [None]
  - THERAPEUTIC RESPONSE DECREASED [None]
